FAERS Safety Report 6459101-9 (Version None)
Quarter: 2009Q4

REPORT INFORMATION
  Report Type: 
  Country: None (occurrence: None)
  Receive Date: 20091125
  Receipt Date: 20091125
  Transmission Date: 20100525
  Serious: Yes (Hospitalization)
  Sender: FDA-Public Use
  Company Number: None

PATIENT
  Age: 35 Year
  Sex: Female
  Weight: 90.2 kg

DRUGS (9)
  1. YAZ [Suspect]
     Indication: ORAL CONTRACEPTION
     Dosage: 1 TABLET DAILY PO
     Route: 048
     Dates: start: 20090501, end: 20091105
  2. BUPROPION HCL [Concomitant]
  3. EFFEXOR XR [Concomitant]
  4. LORTAB [Concomitant]
  5. MOTRIN [Concomitant]
  6. LEVOTHYROXINE SODIUM [Concomitant]
  7. PRAVASTATIN [Concomitant]
  8. FISH OIL [Concomitant]
  9. RANITIDINE [Concomitant]

REACTIONS (1)
  - SUPERIOR SAGITTAL SINUS THROMBOSIS [None]
